FAERS Safety Report 7450321-3 (Version None)
Quarter: 2011Q2

REPORT INFORMATION
  Report Type: 
  Country: None (occurrence: None)
  Receive Date: 20110502
  Receipt Date: 20110422
  Transmission Date: 20111010
  Serious: Yes (Life-Threatening, Hospitalization)
  Sender: FDA-Public Use
  Company Number: CZ-SANOFI-AVENTIS-2011SA025727

PATIENT
  Age: 40 Year
  Sex: Male

DRUGS (4)
  1. FELODIPINE [Suspect]
     Route: 048
     Dates: start: 20110101, end: 20110101
  2. LOKREN [Suspect]
     Dosage: THE PATIENT TOOK 20 TABLETS.
     Route: 048
     Dates: start: 20110101, end: 20110101
  3. LOKREN [Suspect]
     Dosage: THE PATIENT TAKES 1/2 TABLET DAILY.
     Route: 048
     Dates: start: 20110101
  4. ALCOHOL [Suspect]
     Route: 048
     Dates: start: 20110101, end: 20110101

REACTIONS (7)
  - OVERDOSE [None]
  - POISONING [None]
  - BRADYCARDIA [None]
  - BLOOD PH DECREASED [None]
  - SOMNOLENCE [None]
  - HEPATIC ENZYME INCREASED [None]
  - HYPOTENSION [None]
